FAERS Safety Report 25214947 (Version 2)
Quarter: 2025Q2

REPORT INFORMATION
  Report Type: Spontaneous
  Country: UA (occurrence: UA)
  Receive Date: 20250418
  Receipt Date: 20250423
  Transmission Date: 20250716
  Serious: Yes (Other)
  Sender: PFIZER
  Company Number: UA-PFIZER INC-PV202500044144

PATIENT
  Age: 27 Year
  Sex: Male

DRUGS (3)
  1. METHYLPREDNISOLONE SODIUM SUCCINATE [Suspect]
     Active Substance: METHYLPREDNISOLONE SODIUM SUCCINATE
     Indication: Optic atrophy
     Dosage: 1000 MG, 1X/DAY, FOR 3 DAYS
     Route: 042
     Dates: start: 2023, end: 2023
  2. METHYLPREDNISOLONE SODIUM SUCCINATE [Suspect]
     Active Substance: METHYLPREDNISOLONE SODIUM SUCCINATE
     Dosage: 500 MG, 1X/DAY, FOR 3 DAYS
     Route: 042
     Dates: start: 2023, end: 2023
  3. METHYLPREDNISOLONE SODIUM SUCCINATE [Suspect]
     Active Substance: METHYLPREDNISOLONE SODIUM SUCCINATE
     Dosage: 250 MG, 1X/DAY, FOR 3 DAYS
     Route: 042
     Dates: start: 2023, end: 2023

REACTIONS (2)
  - Osteonecrosis [Unknown]
  - Drug ineffective [Unknown]

NARRATIVE: CASE EVENT DATE: 20230101
